FAERS Safety Report 18960400 (Version 1)
Quarter: 2021Q1

REPORT INFORMATION
  Report Type: Other
  Country: CN (occurrence: CN)
  Receive Date: 20210302
  Receipt Date: 20210302
  Transmission Date: 20210420
  Serious: Yes (Other)
  Sender: FDA-Public Use
  Company Number: CN-ROCHE-2770510

PATIENT

DRUGS (6)
  1. PEMBROLIZUMAB. [Suspect]
     Active Substance: PEMBROLIZUMAB
     Indication: LUNG ADENOCARCINOMA
     Route: 065
  2. BEVACIZUMAB. [Suspect]
     Active Substance: BEVACIZUMAB
     Indication: LUNG ADENOCARCINOMA
     Route: 065
  3. ATEZOLIZUMAB. [Suspect]
     Active Substance: ATEZOLIZUMAB
     Indication: LUNG ADENOCARCINOMA
     Route: 065
  4. NIVOLUMAB [Suspect]
     Active Substance: NIVOLUMAB
     Indication: LUNG ADENOCARCINOMA
     Route: 065
  5. APATINIB [Suspect]
     Active Substance: APATINIB
     Indication: LUNG ADENOCARCINOMA
     Route: 065
  6. CATEQUENTINIB. [Suspect]
     Active Substance: CATEQUENTINIB
     Indication: LUNG ADENOCARCINOMA
     Route: 065

REACTIONS (15)
  - Fatigue [Unknown]
  - Arthralgia [Unknown]
  - Hypothyroidism [Unknown]
  - Epistaxis [Unknown]
  - Anaemia [Unknown]
  - Diarrhoea [Unknown]
  - Myalgia [Unknown]
  - Decreased appetite [Unknown]
  - Nausea [Unknown]
  - Rash [Unknown]
  - Pyrexia [Unknown]
  - Pruritus [Unknown]
  - Adrenal insufficiency [Unknown]
  - Hypertension [Unknown]
  - Pneumonia [Unknown]
